FAERS Safety Report 4335610-3 (Version None)
Quarter: 2004Q2

REPORT INFORMATION
  Report Type: 
  Country: None (occurrence: None)
  Receive Date: 20040406
  Receipt Date: 20040325
  Transmission Date: 20050107
  Serious: Yes (Other)
  Sender: FDA-Public Use
  Company Number: US066532

PATIENT
  Age: 61 Year
  Sex: Male

DRUGS (3)
  1. ETANERCEPT [Suspect]
     Indication: PSORIASIS
     Dosage: 25 MG, 1 IN 1 WEEKS, SC
     Route: 058
     Dates: start: 20020513, end: 20040212
  2. TRIAMCINOLONE [Concomitant]
  3. CALCIPOTRIENE [Concomitant]

REACTIONS (3)
  - LOCAL SWELLING [None]
  - LYMPHADENOPATHY [None]
  - NECROTISING GRANULOMATOUS LYMPHADENITIS [None]
